FAERS Safety Report 6142705-0 (Version None)
Quarter: 2009Q2

REPORT INFORMATION
  Report Type: 
  Country: None (occurrence: None)
  Receive Date: 20090403
  Receipt Date: 20090401
  Transmission Date: 20091009
  Serious: Yes (Life-Threatening)
  Sender: FDA-Public Use
  Company Number: FR-BRISTOL-MYERS SQUIBB COMPANY-14556187

PATIENT
  Age: 58 Year
  Sex: Female

DRUGS (3)
  1. TAXOL [Suspect]
     Indication: BREAST CANCER
     Dosage: THERAPY START DATE: 04JAN08. NO OF INF:6
     Route: 042
     Dates: start: 20080523, end: 20080523
  2. FASLODEX [Suspect]
     Indication: BREAST CANCER
     Dosage: 1 DOSAGE FORM= 1 AMPULA
     Route: 030
     Dates: start: 20080623, end: 20080623
  3. AVASTIN [Suspect]
     Indication: BREAST CANCER
     Dosage: THERAPY START DATE: 04JAN08. NO OF INF:6
     Route: 042
     Dates: start: 20080523, end: 20080523

REACTIONS (4)
  - CARDIAC FUNCTION TEST ABNORMAL [None]
  - CEREBRAL ARTERY THROMBOSIS [None]
  - CEREBROVASCULAR ACCIDENT [None]
  - LIPIDS ABNORMAL [None]
